FAERS Safety Report 8378026-5 (Version None)
Quarter: 2012Q2

REPORT INFORMATION
  Report Type: 
  Country: None (occurrence: None)
  Receive Date: 20120522
  Receipt Date: 20120509
  Transmission Date: 20120825
  Serious: Yes (Other)
  Sender: FDA-Public Use
  Company Number: FR-MYLANLABS-2012S1009692

PATIENT
  Age: 4 Year
  Sex: Male

DRUGS (6)
  1. MYCOPHENOLATE MOFETIL [Concomitant]
     Indication: IMMUNOSUPPRESSANT DRUG THERAPY
     Route: 065
  2. TACROLIMUS [Interacting]
     Indication: IMMUNOSUPPRESSANT DRUG THERAPY
     Dosage: 2.5MG DAILY
     Route: 065
     Dates: start: 20091001
  3. AMLODIPINE BESYLATE [Suspect]
     Indication: HYPERTENSION
     Dosage: 0.5 MG/KG/DAY
     Route: 065
     Dates: start: 20091001
  4. PROGRAF [Interacting]
     Indication: IMMUNOSUPPRESSANT DRUG THERAPY
     Dosage: ADJUSTED TO ACHEIVE TROUGH CONCENTRATION OF 5-15 NG/ML
     Route: 065
     Dates: start: 20081001
  5. PREDNISONE [Concomitant]
     Indication: IMMUNOSUPPRESSANT DRUG THERAPY
     Route: 065
  6. ENALAPRIL MALEATE [Concomitant]
     Indication: HYPERTENSION
     Dosage: 0.5 MG/KG/DAY
     Route: 065

REACTIONS (2)
  - DRUG INTERACTION [None]
  - IMMUNOSUPPRESSANT DRUG LEVEL INCREASED [None]
